FAERS Safety Report 25699471 (Version 1)
Quarter: 2025Q3

REPORT INFORMATION
  Report Type: Spontaneous
  Country: JP (occurrence: JP)
  Receive Date: 20250819
  Receipt Date: 20250819
  Transmission Date: 20251021
  Serious: Yes (Other)
  Sender: IPSEN BIOPHARMACEUTICALS, INC.
  Company Number: JP-I.R.I.S.-S25011779

PATIENT
  Age: 70 Year
  Sex: Male

DRUGS (6)
  1. ONIVYDE [Suspect]
     Active Substance: IRINOTECAN HYDROCHLORIDE
     Indication: Pancreatic carcinoma
     Dosage: 100 MG, 1X/2WKS
     Route: 065
  2. ONIVYDE [Suspect]
     Active Substance: IRINOTECAN HYDROCHLORIDE
     Dosage: 100 MG, 1X/2WKS
     Route: 065
  3. FLUOROURACIL [Suspect]
     Active Substance: FLUOROURACIL
     Indication: Pancreatic carcinoma
     Dosage: 3200 MG, 1X/2WKS
  4. FLUOROURACIL [Suspect]
     Active Substance: FLUOROURACIL
     Dosage: 3200 MG, 1X/2WKS
  5. LEVOLEUCOVORIN CALCIUM [Suspect]
     Active Substance: LEVOLEUCOVORIN CALCIUM
     Indication: Pancreatic carcinoma
     Dosage: 350 MG/M2, 1X/2WKS
     Route: 065
  6. LEVOLEUCOVORIN CALCIUM [Suspect]
     Active Substance: LEVOLEUCOVORIN CALCIUM
     Dosage: 350 MG/M2, 1X/2WKS
     Route: 065

REACTIONS (6)
  - Malignant neoplasm progression [Recovered/Resolved]
  - Metastases to pleura [Recovered/Resolved]
  - Fatigue [Unknown]
  - Neuropathy peripheral [Unknown]
  - Tumour marker increased [Unknown]
  - Carbohydrate antigen 19-9 increased [Recovered/Resolved]
